FAERS Safety Report 6164401-6 (Version None)
Quarter: 2009Q2

REPORT INFORMATION
  Report Type: 
  Country: None (occurrence: None)
  Receive Date: 20090422
  Receipt Date: 20090416
  Transmission Date: 20091009
  Serious: Yes (Congenital Anomaly)
  Sender: FDA-Public Use
  Company Number: DK-ABBOTT-09P-044-0568744-00

PATIENT
  Sex: Male

DRUGS (5)
  1. DEPRAKINE [Suspect]
     Indication: DRUG EXPOSURE DURING PREGNANCY
     Route: 064
  2. FRISIUM [Suspect]
     Indication: DRUG EXPOSURE DURING PREGNANCY
     Route: 064
  3. KEPPRA [Suspect]
     Indication: DRUG EXPOSURE DURING PREGNANCY
     Route: 064
  4. PHENOBARBITAL [Suspect]
     Indication: DRUG EXPOSURE DURING PREGNANCY
     Route: 064
  5. ZONEGRAN [Suspect]
     Indication: DRUG EXPOSURE DURING PREGNANCY
     Route: 064

REACTIONS (4)
  - CONGENITAL FOOT MALFORMATION [None]
  - CONVULSION NEONATAL [None]
  - DRUG EXPOSURE DURING PREGNANCY [None]
  - DRUG WITHDRAWAL SYNDROME NEONATAL [None]
